FAERS Safety Report 7231433-6 (Version None)
Quarter: 2011Q1

REPORT INFORMATION
  Report Type: 
  Country: None (occurrence: None)
  Receive Date: 20110118
  Receipt Date: 20110106
  Transmission Date: 20110831
  Serious: Yes (Other)
  Sender: FDA-Public Use
  Company Number: BR-AMGEN-BRACT2011002699

PATIENT

DRUGS (1)
  1. ETANERCEPT [Suspect]
     Indication: RHEUMATOID ARTHRITIS
     Dosage: 25 MG, 2 TIMES/WK
     Dates: start: 20100401, end: 20101101

REACTIONS (5)
  - SKIN DISORDER [None]
  - HAEMORRHAGIC CYST [None]
  - CYST [None]
  - PRURITUS GENERALISED [None]
  - ALOPECIA [None]
